FAERS Safety Report 4895266-8 (Version None)
Quarter: 2006Q1

REPORT INFORMATION
  Report Type: 
  Country: None (occurrence: None)
  Receive Date: 20060130
  Receipt Date: 20060118
  Transmission Date: 20060701
  Serious: Yes (Other)
  Sender: FDA-Public Use
  Company Number: FR-GLAXOSMITHKLINE-B0407439A

PATIENT
  Age: 3 Year

DRUGS (1)
  1. LANVIS [Suspect]
     Route: 065
     Dates: end: 20051206

REACTIONS (3)
  - HISTIOCYTOSIS HAEMATOPHAGIC [None]
  - PANCYTOPENIA [None]
  - VENOOCCLUSIVE LIVER DISEASE [None]
